FAERS Safety Report 12447771 (Version 1)
Quarter: 2016Q2

REPORT INFORMATION
  Report Type: Spontaneous
  Country: US (occurrence: US)
  Receive Date: 20160608
  Receipt Date: 20160608
  Transmission Date: 20160815
  Serious: No
  Sender: FDA-Public Use
  Company Number: US-009507513-1606USA001511

PATIENT
  Age: 28 Year
  Sex: Female
  Weight: 46.71 kg

DRUGS (1)
  1. NUVARING [Suspect]
     Active Substance: ETHINYL ESTRADIOL\ETONOGESTREL
     Dosage: UNK
     Route: 067
     Dates: start: 20160502

REACTIONS (2)
  - Metrorrhagia [Unknown]
  - Pain [Unknown]

NARRATIVE: CASE EVENT DATE: 201605
